FAERS Safety Report 8219152-0 (Version None)
Quarter: 2012Q1

REPORT INFORMATION
  Report Type: 
  Country: None (occurrence: None)
  Receive Date: 20120319
  Receipt Date: 20120315
  Transmission Date: 20120608
  Serious: No
  Sender: FDA-Public Use
  Company Number: US-PFIZER INC-2012068512

PATIENT
  Sex: Female
  Weight: 84.807 kg

DRUGS (2)
  1. IRON [Concomitant]
     Indication: BLOOD IRON DECREASED
     Dosage: 37.5 MG, DAILY
     Route: 048
  2. IBUPROFEN (ADVIL) [Suspect]
     Indication: PELVIC PAIN
     Dosage: 200 MG, 2X/DAY
     Dates: start: 20120314, end: 20120315

REACTIONS (3)
  - BLISTER [None]
  - SLEEP DISORDER [None]
  - PRURITUS [None]
